FAERS Safety Report 25438964 (Version 4)
Quarter: 2025Q4

REPORT INFORMATION
  Report Type: Spontaneous
  Country: US (occurrence: US)
  Receive Date: 20250616
  Receipt Date: 20251217
  Transmission Date: 20260117
  Serious: No
  Sender: BIOVITRUM
  Company Number: US-BIOVITRUM-2025-US-008345

PATIENT
  Age: 46 Year
  Sex: Female

DRUGS (2)
  1. KINERET [Suspect]
     Active Substance: ANAKINRA
     Indication: Still^s disease
     Dosage: 1 SYRINGE, DAILY, 100 MG/0.67 ML
     Route: 058
     Dates: start: 20250327
  2. KINERET [Suspect]
     Active Substance: ANAKINRA
     Dosage: 100 MG PER 0.67 ML 7S

REACTIONS (7)
  - Pyrexia [Recovered/Resolved]
  - Off label use [Not Recovered/Not Resolved]
  - Hypoaesthesia oral [Unknown]
  - Lip blister [Unknown]
  - Product use issue [Unknown]
  - Inappropriate schedule of product administration [Unknown]
  - Product storage error [Unknown]

NARRATIVE: CASE EVENT DATE: 20250327
